FAERS Safety Report 24439388 (Version 1)
Quarter: 2024Q4

REPORT INFORMATION
  Report Type: Spontaneous
  Country: ES (occurrence: ES)
  Receive Date: 20241015
  Receipt Date: 20241015
  Transmission Date: 20250115
  Serious: Yes (Hospitalization)
  Sender: TEVA
  Company Number: None

PATIENT
  Age: 88 Year
  Sex: Female

DRUGS (3)
  1. DULOXETINE [Interacting]
     Active Substance: DULOXETINE
     Indication: Depression
     Dosage: DULOXETINE (7421A)
     Route: 048
     Dates: start: 20240524, end: 20240726
  2. ZOLPIDEM [Concomitant]
     Active Substance: ZOLPIDEM TARTRATE
     Indication: Product used for unknown indication
     Dosage: 0-0-0-1, ZOLPIDEM (2429A)
     Route: 048
     Dates: start: 20240610, end: 20240726
  3. QUETIAPINE [Interacting]
     Active Substance: QUETIAPINE
     Indication: Cognitive disorder
     Dosage: 0-1-2, QUETIAPINE (1136A)
     Route: 048
     Dates: start: 20240322, end: 20240726

REACTIONS (1)
  - Hyponatraemia [Recovered/Resolved]

NARRATIVE: CASE EVENT DATE: 20240722
